FAERS Safety Report 7885915 (Version 4)
Quarter: 2012Q4

REPORT INFORMATION
  Report Type: Report from Study
  Country: DE (occurrence: DE)
  Receive Date: 20110405
  Receipt Date: 20121113
  Transmission Date: 20130627
  Serious: Yes (Other)
  Sender: FDA-Public Use
  Company Number: DE-ABBOTT-11P-062-0715968-00

PATIENT
  Sex: Male

DRUGS (4)
  1. HUMIRA [Suspect]
     Indication: PRODUCT USED FOR UNKNOWN INDICATION
     Dates: start: 20100111, end: 20110215
  2. GLUCOPHAGE [Concomitant]
     Indication: PRODUCT USED FOR UNKNOWN INDICATION
     Dosage: morning 1000mg, 500mg evening
  3. SERTRALIN [Concomitant]
     Indication: PRODUCT USED FOR UNKNOWN INDICATION
  4. SLEEPING TABLET [Concomitant]
     Indication: PRODUCT USED FOR UNKNOWN INDICATION

REACTIONS (8)
  - Tinnitus [Not Recovered/Not Resolved]
  - Diabetes mellitus [Recovered/Resolved]
  - Nasopharyngitis [Recovered/Resolved]
  - Coma [Recovered/Resolved]
  - Visual impairment [Recovered/Resolved]
  - Hepatic enzyme increased [Recovered/Resolved]
  - Deafness neurosensory [Unknown]
  - Psoriasis [Unknown]
